FAERS Safety Report 22274549 (Version 1)
Quarter: 2023Q2

REPORT INFORMATION
  Report Type: Spontaneous
  Country: US (occurrence: US)
  Receive Date: 20230502
  Receipt Date: 20230502
  Transmission Date: 20230721
  Serious: Yes (Other)
  Sender: FDA-Public Use
  Company Number: US-BIOXCEL THERAPEUTICS, INC.-2023BIX00021

PATIENT
  Age: 70 Year
  Sex: Male

DRUGS (2)
  1. IGALMI [Suspect]
     Active Substance: DEXMEDETOMIDINE
     Indication: Agitation
     Dosage: 120 ?G, ONCE
  2. IGALMI [Suspect]
     Active Substance: DEXMEDETOMIDINE
     Dosage: 60 ?G, ONCE

REACTIONS (1)
  - Drug ineffective for unapproved indication [Recovered/Resolved]
